FAERS Safety Report 14538729 (Version 9)
Quarter: 2019Q4

REPORT INFORMATION
  Report Type: Report from Study
  Country: None (occurrence: US)
  Receive Date: 20180216
  Receipt Date: 20191216
  Transmission Date: 20200122
  Serious: Yes (Hospitalization)
  Sender: FDA-Public Use
  Company Number: US-ABBVIE-18K-163-2241785-00

PATIENT
  Age: 74 Year
  Sex: Male
  Weight: 87.17 kg

DRUGS (6)
  1. HYZAAR [Concomitant]
     Active Substance: HYDROCHLOROTHIAZIDE\LOSARTAN POTASSIUM
     Indication: HYPERTENSION
  2. HUMIRA [Suspect]
     Active Substance: ADALIMUMAB
     Indication: PSORIATIC ARTHROPATHY
  3. HUMIRA [Suspect]
     Active Substance: ADALIMUMAB
     Indication: PSORIASIS
     Route: 058
     Dates: start: 2008, end: 2015
  4. HUMIRA [Suspect]
     Active Substance: ADALIMUMAB
     Indication: PSORIATIC ARTHROPATHY
  5. HUMIRA [Suspect]
     Active Substance: ADALIMUMAB
     Indication: PSORIASIS
     Route: 058
  6. STELARA [Suspect]
     Active Substance: USTEKINUMAB
     Indication: PSORIASIS
     Route: 065
     Dates: start: 201710, end: 201710

REACTIONS (13)
  - Nasopharyngitis [Recovered/Resolved]
  - Osteoarthritis [Unknown]
  - Lyme disease [Recovered/Resolved]
  - Device issue [Unknown]
  - Bronchitis [Recovered/Resolved]
  - Arthralgia [Unknown]
  - Injection site haemorrhage [Unknown]
  - Arthropathy [Recovered/Resolved]
  - Psoriasis [Unknown]
  - Drug ineffective [Unknown]
  - Gait inability [Recovered/Resolved]
  - Procedural pain [Recovered/Resolved]
  - Bronchitis [Recovered/Resolved]

NARRATIVE: CASE EVENT DATE: 2017
